FAERS Safety Report 14269338 (Version 1)
Quarter: 2017Q4

REPORT INFORMATION
  Report Type: Spontaneous
  Country: US (occurrence: US)
  Receive Date: 20171211
  Receipt Date: 20171211
  Transmission Date: 20180321
  Serious: Yes (Other)
  Sender: FDA-Public Use
  Company Number: US-OTSUKA-DJ20090880

PATIENT

DRUGS (6)
  1. UNKNOWNDRUG [Concomitant]
     Active Substance: UNSPECIFIED INGREDIENT
     Indication: PARKINSON^S DISEASE
     Route: 065
  2. LEVODOPA [Concomitant]
     Active Substance: LEVODOPA
  3. LORAZEPAM. [Concomitant]
     Active Substance: LORAZEPAM
  4. SINEMET [Concomitant]
     Active Substance: CARBIDOPA\LEVODOPA
     Route: 065
  5. ABILIFY [Suspect]
     Active Substance: ARIPIPRAZOLE
     Route: 065
  6. LORAZEPAM. [Concomitant]
     Active Substance: LORAZEPAM
     Route: 065

REACTIONS (1)
  - Electrocardiogram QT prolonged [Recovered/Resolved]
